FAERS Safety Report 7449436-5 (Version None)
Quarter: 2011Q2

REPORT INFORMATION
  Report Type: 
  Country: None (occurrence: None)
  Receive Date: 20110502
  Receipt Date: 20110425
  Transmission Date: 20111010
  Serious: No
  Sender: FDA-Public Use
  Company Number: US-BIOGENIDEC-2011BI015300

PATIENT
  Sex: Female

DRUGS (6)
  1. HYDROCHLOROTHIAZIDE [Concomitant]
     Indication: HYPERTENSION
  2. ACTOPLUS MET [Concomitant]
     Indication: DIABETES MELLITUS
  3. AVONEX [Suspect]
     Indication: MULTIPLE SCLEROSIS
     Route: 030
     Dates: start: 20110328
  4. ZESTRIL [Concomitant]
     Indication: POSTPARTUM DISORDER
  5. VENTOLIN [Concomitant]
     Indication: ASTHMA
  6. NOVOLIN 70/30 [Concomitant]
     Indication: DIABETES MELLITUS

REACTIONS (5)
  - JOINT SWELLING [None]
  - DYSPNOEA EXERTIONAL [None]
  - FATIGUE [None]
  - BACK PAIN [None]
  - WEIGHT INCREASED [None]
